FAERS Safety Report 24682127 (Version 2)
Quarter: 2025Q3

REPORT INFORMATION
  Report Type: Report from Study
  Country: EU (occurrence: EU)
  Receive Date: 20241130
  Receipt Date: 20250803
  Transmission Date: 20251021
  Serious: Yes (Other)
  Sender: ALEXION PHARMACEUTICALS
  Company Number: EU-ASTRAZENECA-202411GLO017154IT

PATIENT
  Age: 76 Year
  Sex: Male

DRUGS (1)
  1. OSIMERTINIB [Suspect]
     Active Substance: OSIMERTINIB
     Indication: Non-small cell lung cancer

REACTIONS (1)
  - Cutaneous anthrax [Recovered/Resolved]

NARRATIVE: CASE EVENT DATE: 20230306
